FAERS Safety Report 8313617-9 (Version None)
Quarter: 2012Q2

REPORT INFORMATION
  Report Type: 
  Country: None (occurrence: None)
  Receive Date: 20120426
  Receipt Date: 20120411
  Transmission Date: 20120825
  Serious: Yes (Hospitalization, Other)
  Sender: FDA-Public Use
  Company Number: JP-RANBAXY-2012RR-55706

PATIENT
  Age: 14 Year
  Sex: Female

DRUGS (7)
  1. PREDNISOLONE [Suspect]
     Indication: DRUG RASH WITH EOSINOPHILIA AND SYSTEMIC SYMPTOMS
     Route: 065
  2. LAMOTRGINE [Suspect]
     Route: 065
  3. PREDNISOLONE [Suspect]
     Route: 065
  4. MIDAZOLAM [Suspect]
     Indication: SEDATION
     Route: 065
  5. KETAMINE HCL [Suspect]
     Indication: SEDATION
     Route: 065
  6. LAMOTRGINE [Suspect]
     Indication: CONVULSION
     Route: 065
  7. PREDNISOLONE [Suspect]
     Route: 065

REACTIONS (4)
  - HYPERTHYROIDISM [None]
  - HERPES VIRUS INFECTION [None]
  - HYPOTHYROIDISM [None]
  - DRUG RASH WITH EOSINOPHILIA AND SYSTEMIC SYMPTOMS [None]
